FAERS Safety Report 11128730 (Version 2)
Quarter: 2015Q2

REPORT INFORMATION
  Report Type: Spontaneous
  Country: GB (occurrence: GB)
  Receive Date: 20150521
  Receipt Date: 20150528
  Transmission Date: 20150821
  Serious: Yes (Hospitalization)
  Sender: FDA-Public Use
  Company Number: GB-TEVA-563283ACC

PATIENT
  Age: 75 Year
  Sex: Male
  Weight: 104 kg

DRUGS (4)
  1. EPIRUBICIN [Suspect]
     Active Substance: EPIRUBICIN
     Indication: GASTRIC CANCER
     Dosage: LAST DOSE PRIOR SAE: 10 JULY 2010, FREQUENCY: NOT REPORTED
     Route: 042
     Dates: start: 20100528
  2. CISPLATIN. [Suspect]
     Active Substance: CISPLATIN
     Indication: GASTRIC CANCER
     Dosage: LAST DOSE PRIOR SAE: 10 JULY 2010
     Route: 042
     Dates: start: 20100528
  3. AVASTIN [Suspect]
     Active Substance: BEVACIZUMAB
     Indication: GASTRIC CANCER
     Dosage: LAST DOSE PRIOR SAE: 10 JULY 2010, FREQUENCY: NOT REPORTED
     Route: 042
  4. XELODA [Suspect]
     Active Substance: CAPECITABINE
     Indication: GASTRIC CANCER
     Dosage: LAST DOSE PRIOR SAE: 10 JULY 2010, FREQUENCY: NOT REPORTED
     Route: 048

REACTIONS (3)
  - Dehydration [Recovered/Resolved]
  - Diarrhoea [Recovered/Resolved]
  - Dizziness [Unknown]

NARRATIVE: CASE EVENT DATE: 20100701
